FAERS Safety Report 25051356 (Version 1)
Quarter: 2025Q1

REPORT INFORMATION
  Report Type: Spontaneous
  Country: US (occurrence: US)
  Receive Date: 20250307
  Receipt Date: 20250307
  Transmission Date: 20250409
  Serious: Yes (Life-Threatening, Hospitalization, Other)
  Sender: OPKO HEALTH
  Company Number: US-OPKO PHARMACEUTICALS, LLC.-2025OPK00053

PATIENT
  Age: 79 Year
  Sex: Female

DRUGS (3)
  1. RAYALDEE [Suspect]
     Active Substance: CALCIFEDIOL
     Indication: Chronic kidney disease
     Dosage: 30 MCG, QD
     Route: 048
     Dates: start: 20221012, end: 20250113
  2. RAYALDEE [Suspect]
     Active Substance: CALCIFEDIOL
     Indication: Hyperparathyroidism secondary
     Dosage: 30 MCG, QD
     Route: 048
     Dates: start: 20250131, end: 20250214
  3. RAYALDEE [Suspect]
     Active Substance: CALCIFEDIOL
     Indication: Vitamin D deficiency
     Dosage: 30 MCG, QD
     Route: 048
     Dates: start: 20250228

REACTIONS (2)
  - Cerebrovascular accident [Unknown]
  - Cerebrovascular accident [Unknown]

NARRATIVE: CASE EVENT DATE: 20250113
